FAERS Safety Report 7422841-9 (Version None)
Quarter: 2011Q2

REPORT INFORMATION
  Report Type: 
  Country: None (occurrence: None)
  Receive Date: 20110419
  Receipt Date: 20100108
  Transmission Date: 20111010
  Serious: Yes (Death, Hospitalization, Other)
  Sender: FDA-Public Use
  Company Number: US-BAYER-201010268NA

PATIENT
  Age: 76 Year
  Sex: Female
  Weight: 72.562 kg

DRUGS (47)
  1. TRASYLOL [Suspect]
     Indication: CORONARY ARTERY BYPASS
     Dosage: 200 ML, CARDIOPULMONARY BYPASS PRIME
     Route: 042
     Dates: start: 20030124, end: 20030124
  2. LIPITOR [Concomitant]
     Dosage: 10 MG, UNK
     Route: 048
     Dates: start: 20030106
  3. GLUCOTROL [Concomitant]
     Dosage: 7.5 MG, UNK
     Route: 048
     Dates: start: 20030113
  4. ZEMURON [Concomitant]
     Dosage: UNK
     Route: 042
     Dates: start: 20030117
  5. VECURONIUM BROMIDE [Concomitant]
     Dosage: UNK
     Route: 042
     Dates: start: 20030124, end: 20030124
  6. CARDIZEM [Concomitant]
     Route: 048
  7. GLIPIZIDE [Concomitant]
     Route: 048
  8. PROCARDIA [Concomitant]
     Route: 048
  9. HEPARIN [Concomitant]
     Dosage: 23000 U, CPB
     Dates: start: 20030124, end: 20030124
  10. ZOCOR [Concomitant]
     Route: 048
  11. NOVOLOG [Concomitant]
     Dosage: SLIDING SCALE
     Route: 058
     Dates: start: 20030103
  12. PLAVIX [Concomitant]
     Dosage: 75 MG, UNK
     Route: 048
     Dates: start: 20030109
  13. ZOSYN [Concomitant]
     Dosage: 2.25 G, UNK
     Route: 042
     Dates: start: 20030109
  14. LISINOPRIL [Concomitant]
     Dosage: 20 MG, UNK
     Route: 048
     Dates: start: 20030110
  15. ARANESP [Concomitant]
     Dosage: 0.1 MG, UNK
     Route: 058
     Dates: start: 20030103
  16. VANCOMYCIN [Concomitant]
     Dosage: 1 G, UNK
     Route: 042
     Dates: start: 20030109
  17. LIDOCAINE [Concomitant]
     Dosage: 100 MG, UNK
     Route: 042
     Dates: start: 20030109
  18. CATAPRES [Concomitant]
     Route: 048
  19. PHOSLO [Concomitant]
     Dosage: UNK
     Route: 048
  20. HEPARIN [Concomitant]
     Dosage: 5000 U, CPB
     Dates: start: 20030124, end: 20030124
  21. LASIX [Concomitant]
     Dosage: 100 MG, UNK
     Route: 042
     Dates: start: 20030106
  22. LABETALOL [Concomitant]
     Dosage: UNK
     Route: 042
     Dates: start: 20030109
  23. LIDOCAINE [Concomitant]
     Dosage: 100 MG, CPB
     Dates: start: 20030124, end: 20030124
  24. ALBUMIN (HUMAN) [Concomitant]
     Dosage: 250 ML, CPB
     Dates: start: 20030124, end: 20030124
  25. ISOSORBIDE DINITRATE [Concomitant]
     Route: 048
  26. CARDIZEM [Concomitant]
     Dosage: 10MG/HR
     Route: 042
     Dates: start: 20030103
  27. AMIODARONE [Concomitant]
     Dosage: 200 MG, UNK
     Route: 048
     Dates: start: 20030103
  28. NITROGLYCERIN [Concomitant]
     Dosage: TITRATED DRIP
     Route: 042
     Dates: start: 20030103
  29. PROPOFOL [Concomitant]
     Dosage: UNK
     Route: 042
     Dates: start: 20030109
  30. VERSED [Concomitant]
     Dosage: UNK
     Route: 042
     Dates: start: 20030124, end: 20030124
  31. FENTANYL [Concomitant]
     Dosage: UNK
     Route: 042
     Dates: start: 20030109
  32. VICODIN [Concomitant]
     Dosage: UNK
     Route: 048
     Dates: start: 20030109
  33. ACETYLSALICYLIC ACID SRT [Concomitant]
     Dosage: 81 MG, UNK
     Route: 048
     Dates: start: 20030113
  34. PROTAMINE SULFATE [Concomitant]
     Dosage: UNK
     Route: 042
     Dates: start: 20030117
  35. METOPROLOL [Concomitant]
     Dosage: 25 MG, UNK
     Route: 048
  36. ENALAPRIL [Concomitant]
     Route: 048
  37. LEVAQUIN [Concomitant]
     Route: 048
  38. RENAGEL [Concomitant]
     Dosage: 20 MG, UNK
     Route: 048
     Dates: start: 20030104
  39. VANCOMYCIN [Concomitant]
     Dosage: 1 G, CPB
     Dates: start: 20030124, end: 20030124
  40. VERSED [Concomitant]
     Dosage: UNK
     Route: 042
     Dates: start: 20030109
  41. FENTANYL [Concomitant]
     Dosage: UNK
     Route: 042
     Dates: start: 20030124, end: 20030124
  42. RED BLOOD CELLS [Concomitant]
     Dosage: UNK
     Dates: start: 20030124
  43. CLONIDINE [Concomitant]
     Dosage: 0.3 MG, UNK
     Route: 048
     Dates: start: 20030104
  44. HEPARIN [Concomitant]
     Dosage: 850 UNITS/HR
     Route: 042
     Dates: start: 20030105
  45. IMDUR [Concomitant]
     Dosage: 20 MG, UNK
     Route: 048
     Dates: start: 20030110
  46. FERRLECIT [Concomitant]
     Dosage: UNK
     Route: 042
     Dates: start: 20030113
  47. ETOMIDATE [Concomitant]
     Dosage: UNK
     Route: 042
     Dates: start: 20030124, end: 20030124

REACTIONS (12)
  - ANXIETY [None]
  - PAIN [None]
  - STRESS [None]
  - FEAR [None]
  - UNEVALUABLE EVENT [None]
  - ANHEDONIA [None]
  - RENAL IMPAIRMENT [None]
  - EMOTIONAL DISTRESS [None]
  - RENAL FAILURE [None]
  - DEATH [None]
  - RENAL INJURY [None]
  - INJURY [None]
